FAERS Safety Report 8273729-5 (Version None)
Quarter: 2012Q2

REPORT INFORMATION
  Report Type: 
  Country: None (occurrence: None)
  Receive Date: 20120409
  Receipt Date: 20120409
  Transmission Date: 20120825
  Serious: No
  Sender: FDA-Public Use
  Company Number: None

PATIENT
  Sex: Male
  Weight: 62.3 kg

DRUGS (1)
  1. CISPLATIN [Suspect]
     Dosage: 183 MG

REACTIONS (7)
  - PAIN [None]
  - HYPOPHAGIA [None]
  - FLUID INTAKE REDUCED [None]
  - BLOOD PRESSURE DECREASED [None]
  - DYSPHAGIA [None]
  - WEIGHT DECREASED [None]
  - BURNING SENSATION [None]
